FAERS Safety Report 9372980 (Version 1)
Quarter: 2013Q2

REPORT INFORMATION
  Report Type: Other
  Country: GB (occurrence: GB)
  Receive Date: 20130627
  Receipt Date: 20130627
  Transmission Date: 20140414
  Serious: Yes (Other)
  Sender: FDA-Public Use
  Company Number: GB-WATSON-2013-11057

PATIENT
  Sex: 0

DRUGS (1)
  1. LAMOTRIGINE (UNKNOWN) [Suspect]
     Indication: PRODUCT USED FOR UNKNOWN INDICATION
     Dosage: 300 MG, BID
     Route: 065

REACTIONS (4)
  - Convulsion [Unknown]
  - Drug ineffective [Unknown]
  - Alopecia [Unknown]
  - Diplopia [Unknown]
